FAERS Safety Report 6224270-2 (Version None)
Quarter: 2009Q2

REPORT INFORMATION
  Report Type: 
  Country: None (occurrence: None)
  Receive Date: 20090612
  Receipt Date: 20090317
  Transmission Date: 20091009
  Serious: No
  Sender: FDA-Public Use
  Company Number: US-ABBOTT-09P-163-0563088-00

PATIENT
  Sex: Female
  Weight: 71.732 kg

DRUGS (8)
  1. HUMIRA [Suspect]
     Indication: CROHN'S DISEASE
     Route: 058
     Dates: start: 20090101
  2. HUMIRA [Suspect]
     Dosage: PRE-FILLED SYRINGE
     Dates: end: 20090201
  3. AZITHIOPRINE [Concomitant]
     Indication: CROHN'S DISEASE
  4. CELEXA [Concomitant]
     Indication: DEPRESSION
  5. LOW OGESTREROL [Concomitant]
     Indication: CONTRACEPTION
  6. DICLOFENAC SODIUM [Concomitant]
     Indication: MUSCLE SPASMS
  7. SKELAN [Concomitant]
     Indication: MUSCLE SPASMS
  8. AMITRIPTLINE HYDROCHLORIDE TAB [Concomitant]
     Indication: MIGRAINE

REACTIONS (1)
  - INCORRECT DOSE ADMINISTERED [None]
